FAERS Safety Report 9881975 (Version 3)
Quarter: 2014Q1

REPORT INFORMATION
  Report Type: Spontaneous
  Country: GB (occurrence: GB)
  Receive Date: 20140207
  Receipt Date: 20140210
  Transmission Date: 20141002
  Serious: Yes (Other)
  Sender: FDA-Public Use
  Company Number: GB-PFIZER INC-A105911

PATIENT
  Age: 11 Year
  Sex: Female

DRUGS (14)
  1. LUSTRAL [Suspect]
     Dosage: UNK
     Route: 048
  2. METHYLPREDNISOLONE [Suspect]
     Dosage: UNK
  3. VANCOMYCIN HCL [Suspect]
     Dosage: UNK
  4. SYNERCID [Suspect]
     Dosage: UNK
     Route: 042
  5. NYSTAN [Suspect]
     Dosage: UNK
     Route: 048
  6. TACROLIMUS [Suspect]
     Dosage: UNK
  7. ASPIRIN [Suspect]
     Dosage: UNK
     Route: 048
  8. CISAPRIDE [Suspect]
  9. DIPYRIDAMOLE [Suspect]
     Dosage: UNK
  10. SALBUTAMOL [Suspect]
     Dosage: UNK
  11. GENTAMYCIN [Suspect]
     Dosage: UNK
     Route: 042
  12. MEROPENEM [Suspect]
     Dosage: UNK
     Route: 042
  13. AMPHOTERICIN B [Suspect]
     Dosage: UNK
  14. MELATONIN [Suspect]
     Dosage: UNK

REACTIONS (2)
  - Renal failure [Unknown]
  - Azotaemia [Unknown]
